FAERS Safety Report 6427845-0 (Version None)
Quarter: 2009Q4

REPORT INFORMATION
  Report Type: 
  Country: None (occurrence: None)
  Receive Date: 20091104
  Receipt Date: 20091104
  Transmission Date: 20100525
  Serious: Yes (Other)
  Sender: FDA-Public Use
  Company Number: None

PATIENT
  Age: 59 Year
  Sex: Female
  Weight: 175.0885 kg

DRUGS (12)
  1. MORPHINE SULPHATE 30 MG WATSON/RPG [Suspect]
     Indication: ARTHRITIS
     Dosage: 30MG EVERY 12 HOURS PO
     Route: 048
     Dates: start: 20090823, end: 20090921
  2. MORPHINE SULPHATE 30 MG WATSON/RPG [Suspect]
     Indication: PAIN
     Dosage: 30MG EVERY 12 HOURS PO
     Route: 048
     Dates: start: 20090823, end: 20090921
  3. MORPHINE SULPHAGE CR 30 MG WATSON/RPG [Suspect]
     Indication: PAIN
     Dosage: 30MG EVERY 12 HOURS PO
     Route: 048
     Dates: start: 20090930, end: 20091030
  4. MORPHINE SULPHAGE CR 30 MG WATSON/RPG [Suspect]
     Indication: POLYNEUROPATHY
     Dosage: 30MG EVERY 12 HOURS PO
     Route: 048
     Dates: start: 20090930, end: 20091030
  5. HYDROCORTISONE [Concomitant]
  6. HYCROCODONE [Concomitant]
  7. VICODIN [Concomitant]
  8. METOPROLOL TARTRATE [Concomitant]
  9. ISOSORBIDE [Concomitant]
  10. HYDROCHLOROTHIAZIDE [Concomitant]
  11. DILITIZEM [Concomitant]
  12. CARDIZEM [Concomitant]

REACTIONS (12)
  - ANXIETY [None]
  - ASTHENIA [None]
  - DIARRHOEA [None]
  - FATIGUE [None]
  - HOT FLUSH [None]
  - INFLUENZA LIKE ILLNESS [None]
  - NEURALGIA [None]
  - PRODUCT SUBSTITUTION ISSUE [None]
  - RESTLESSNESS [None]
  - TACHYCARDIA [None]
  - TREMOR [None]
  - WHEEZING [None]
